FAERS Safety Report 8284903-6 (Version None)
Quarter: 2012Q2

REPORT INFORMATION
  Report Type: 
  Country: None (occurrence: None)
  Receive Date: 20120413
  Receipt Date: 20110325
  Transmission Date: 20120825
  Serious: No
  Sender: FDA-Public Use
  Company Number: US-ASTRAZENECA-2011SE13763

PATIENT
  Age: 56 Year
  Sex: Male

DRUGS (1)
  1. NEXIUM [Suspect]
     Route: 048

REACTIONS (8)
  - MUSCULOSKELETAL DISCOMFORT [None]
  - PHARYNGEAL DISORDER [None]
  - OROPHARYNGEAL PAIN [None]
  - DYSPEPSIA [None]
  - WRONG DRUG ADMINISTERED [None]
  - DRUG DOSE OMISSION [None]
  - THROAT TIGHTNESS [None]
  - ADVERSE EVENT [None]
